FAERS Safety Report 8836848 (Version 1)
Quarter: 2012Q4

REPORT INFORMATION
  Report Type: Spontaneous
  Country: AU (occurrence: None)
  Receive Date: 20121010
  Receipt Date: 20121010
  Transmission Date: 20130627
  Serious: Yes (Hospitalization, Other)
  Sender: FDA-Public Use
  Company Number: 2012/150

PATIENT
  Age: 69 Year
  Sex: Female

DRUGS (1)
  1. LEVETIRACETAM [Suspect]
     Indication: TEMPORAL LOBE EPILEPSY
     Dosage: 500 mg, twice a day + unknown

REACTIONS (11)
  - Tubulointerstitial nephritis [None]
  - Skin exfoliation [None]
  - Stomatitis [None]
  - Herpes simplex [None]
  - Renal impairment [None]
  - Klebsiella test positive [None]
  - Hypogammaglobulinaemia [None]
  - Fluid overload [None]
  - Metabolic acidosis [None]
  - Haemodialysis [None]
  - Delirium [None]
